FAERS Safety Report 9916272 (Version 4)
Quarter: 2014Q2

REPORT INFORMATION
  Report Type: Spontaneous
  Country: IT (occurrence: None)
  Receive Date: 20140219
  Receipt Date: 20140422
  Transmission Date: 20141212
  Serious: Yes (Hospitalization)
  Sender: FDA-Public Use
  Company Number: AUR-APL-2014-01652

PATIENT
  Age: 72 Year
  Sex: Female

DRUGS (5)
  1. LEVOFLOXACIN [Suspect]
     Indication: PRODUCT USED FOR UNKNOWN INDICATION
     Dosage: 10 DOSAGE FORMS, TOTAL, ORAL
     Route: 048
     Dates: start: 20131230, end: 20140108
  2. MODURETIC [Suspect]
     Indication: HYPERTENSION
     Dosage: 1 DOSAGE FORMS, 1 D, ORAL
     Route: 048
     Dates: start: 20050101, end: 20140109
  3. ENALAPRIL MALEATE [Suspect]
     Indication: HYPERTENSION
     Route: 048
     Dates: start: 20050101, end: 20140109
  4. COUMADIN (WARFARIN SODIUM) [Concomitant]
  5. EUTIROX (LEVOTHYROXINE SODIUM) [Concomitant]

REACTIONS (4)
  - Hyponatraemia [None]
  - Hypotension [None]
  - Renal failure acute [None]
  - Hyperkalaemia [None]
